FAERS Safety Report 9857040 (Version 1)
Quarter: 2014Q1

REPORT INFORMATION
  Report Type: Spontaneous
  Country: IN (occurrence: None)
  Receive Date: 20140128
  Receipt Date: 20140128
  Transmission Date: 20141002
  Serious: Yes (Hospitalization)
  Sender: FDA-Public Use
  Company Number: 7264972

PATIENT
  Sex: Male

DRUGS (1)
  1. LEVOTHYROXINE [Suspect]
     Indication: HYPOTHYROIDISM
     Dosage: SINCE NEONATAL PERIOD

REACTIONS (5)
  - Hypertension [None]
  - Tachycardia [None]
  - Hyperhidrosis [None]
  - Pyrexia [None]
  - Accidental overdose [None]
